FAERS Safety Report 10077374 (Version 1)
Quarter: 2014Q2

REPORT INFORMATION
  Report Type: Spontaneous
  Country: US (occurrence: US)
  Receive Date: 20140414
  Receipt Date: 20140414
  Transmission Date: 20141212
  Serious: No
  Sender: FDA-Public Use
  Company Number: US-BANPHARM-20131427

PATIENT
  Age: 59 Year
  Sex: Female
  Weight: 76.19 kg

DRUGS (3)
  1. NAPROXEN SODIUM 220 MG [Suspect]
     Indication: ARTHRALGIA
     Dosage: 1 DF AM, 2 DF QHS,
     Route: 048
     Dates: start: 20130610, end: 20130612
  2. LISINOPRIL [Concomitant]
  3. HYDROCHLOROTHIAZIDE [Concomitant]

REACTIONS (2)
  - Drug ineffective [Unknown]
  - Inappropriate schedule of drug administration [Unknown]
